FAERS Safety Report 7372911-9 (Version None)
Quarter: 2011Q1

REPORT INFORMATION
  Report Type: 
  Country: None (occurrence: None)
  Receive Date: 20110324
  Receipt Date: 20110321
  Transmission Date: 20110831
  Serious: Yes (Disabling)
  Sender: FDA-Public Use
  Company Number: DK-PFIZER INC-2011062405

PATIENT
  Age: 50 Year
  Sex: Female

DRUGS (3)
  1. TRAMADOL HCL [Interacting]
     Indication: FLANK PAIN
     Dosage: 50 MG, 3X/DAY
  2. CHAMPIX [Suspect]
     Indication: SMOKING CESSATION THERAPY
     Dosage: 0.5 MG, 1X/DAY
     Route: 048
  3. ZARATOR ^PFIZER^ [Concomitant]
     Indication: BLOOD CHOLESTEROL

REACTIONS (3)
  - DRUG INTERACTION [None]
  - DRUG EFFECT DECREASED [None]
  - PAIN [None]
